FAERS Safety Report 16133282 (Version 1)
Quarter: 2019Q1

REPORT INFORMATION
  Report Type: Spontaneous
  Country: FR (occurrence: FR)
  Receive Date: 20190329
  Receipt Date: 20190329
  Transmission Date: 20190418
  Serious: Yes (Hospitalization)
  Sender: FDA-Public Use
  Company Number: FR-SUN PHARMACEUTICAL INDUSTRIES LTD-2019RR-203313

PATIENT
  Age: 71 Year
  Sex: Male
  Weight: 85 kg

DRUGS (15)
  1. PREGABALINE MYLAN 25 MG, GELULE [Suspect]
     Active Substance: PREGABALIN
     Indication: PRODUCT USED FOR UNKNOWN INDICATION
     Dosage: 2 DOSAGE FORM, DAILY
     Route: 048
     Dates: end: 20190203
  2. COLCHICINE OPOCALCIUM 1 MG, COMPRIME [Suspect]
     Active Substance: COLCHICINE
     Indication: GOUT
     Dosage: 1 DOSAGE FORM, DAILY
     Route: 048
     Dates: start: 20190202, end: 20190202
  3. TRAMADOL. [Suspect]
     Active Substance: TRAMADOL
     Indication: PAIN
     Dosage: 300 MILLIGRAM, DAILY
     Route: 048
     Dates: end: 20190203
  4. MOVICOL [Concomitant]
     Active Substance: POLYETHYLENE GLYCOL 3350\POTASSIUM CHLORIDE\SODIUM BICARBONATE\SODIUM CHLORIDE
     Indication: PRODUCT USED FOR UNKNOWN INDICATION
     Dosage: ()
     Route: 065
  5. ATROVENT [Concomitant]
     Active Substance: IPRATROPIUM BROMIDE
     Indication: PRODUCT USED FOR UNKNOWN INDICATION
     Dosage: ()
     Route: 065
  6. FUROSEMIDE. [Concomitant]
     Active Substance: FUROSEMIDE
     Indication: PRODUCT USED FOR UNKNOWN INDICATION
     Dosage: ()
     Route: 065
  7. IMOVANE [Suspect]
     Active Substance: ZOPICLONE
     Indication: SLEEP DISORDER
     Dosage: 1 DOSAGE FORM, DAILY
     Route: 048
     Dates: start: 20190201, end: 20190202
  8. ROSUVASTATINE [Concomitant]
     Active Substance: ROSUVASTATIN
     Indication: PRODUCT USED FOR UNKNOWN INDICATION
     Dosage: ()
     Route: 065
  9. PREVISCAN 20 MG, COMPRIME SECABLE [Suspect]
     Active Substance: FLUINDIONE
     Indication: ATRIAL FIBRILLATION
     Dosage: 0.25 DOSAGE FORM, DAILY
     Route: 048
     Dates: end: 20190203
  10. PIPERACILLINE TAZOBACTAM MYLAN [Suspect]
     Active Substance: PIPERACILLIN SODIUM\TAZOBACTAM SODIUM
     Indication: ENDOCARDITIS
     Dosage: 3 DOSAGE FORM, DAILY
     Route: 041
     Dates: start: 20190201
  11. DIFFU K, GELULE [Concomitant]
     Active Substance: POTASSIUM CHLORIDE
     Indication: PRODUCT USED FOR UNKNOWN INDICATION
     Dosage: ()
     Route: 065
  12. DAPTOMYCINE ACCORD [Suspect]
     Active Substance: DAPTOMYCIN
     Indication: ENDOCARDITIS
     Dosage: 850 MILLIGRAM
     Route: 041
     Dates: start: 20190201
  13. BISOPROLOL (HEMIFUMARATE DE) [Concomitant]
     Active Substance: BISOPROLOL FUMARATE
     Indication: PRODUCT USED FOR UNKNOWN INDICATION
     Dosage: ()
     Route: 065
  14. ACIDE FOLIQUE [Concomitant]
     Active Substance: FOLIC ACID
     Indication: PRODUCT USED FOR UNKNOWN INDICATION
     Dosage: ()
     Route: 065
  15. BRICANYL [Suspect]
     Active Substance: TERBUTALINE SULFATE
     Indication: DYSPNOEA
     Dosage: 6 DOSAGE FORM, DAILY
     Route: 055
     Dates: start: 20190202, end: 20190205

REACTIONS (2)
  - Confusional state [Recovered/Resolved]
  - Acute kidney injury [Recovered/Resolved]

NARRATIVE: CASE EVENT DATE: 20190203
